FAERS Safety Report 8460350-9 (Version None)
Quarter: 2012Q2

REPORT INFORMATION
  Report Type: 
  Country: None (occurrence: None)
  Receive Date: 20120622
  Receipt Date: 20120607
  Transmission Date: 20120825
  Serious: Yes (Hospitalization)
  Sender: FDA-Public Use
  Company Number: US-ASTELLAS-2011US003171

PATIENT
  Sex: Male
  Weight: 70 kg

DRUGS (17)
  1. GABAPENTIN [Concomitant]
     Indication: PRODUCT USED FOR UNKNOWN INDICATION
     Dosage: 300 MG, TID
     Route: 065
     Dates: end: 20110601
  2. PROTONIX [Concomitant]
     Indication: PRODUCT USED FOR UNKNOWN INDICATION
     Dosage: 40 MG, UID/QD
     Route: 065
  3. ERLOTINIB HYDROCHLORIDE [Suspect]
     Indication: HEPATIC NEOPLASM MALIGNANT
     Dosage: 150 MG, UID/QD
     Route: 048
     Dates: start: 20101123, end: 20110614
  4. NEURONTIN [Concomitant]
     Indication: PRODUCT USED FOR UNKNOWN INDICATION
     Dosage: UNK
     Route: 065
     Dates: end: 20110601
  5. NEXIUM [Concomitant]
     Indication: PRODUCT USED FOR UNKNOWN INDICATION
     Dosage: 20 MG, UID/QD
     Route: 065
  6. SORAFENIB [Suspect]
     Indication: HEPATIC NEOPLASM MALIGNANT
     Dosage: 400 MG, BID
     Route: 048
     Dates: start: 20101123, end: 20110614
  7. METHADONE HCL [Concomitant]
     Indication: PRODUCT USED FOR UNKNOWN INDICATION
     Dosage: 20 MG, TID
     Route: 065
     Dates: end: 20110601
  8. TRIAMCINOLONE [Concomitant]
     Indication: RASH
     Dosage: UNK
     Route: 065
  9. NEURONTIN [Concomitant]
     Dosage: 100 MG, TID
     Route: 065
     Dates: start: 20110601
  10. LASIX [Concomitant]
     Indication: PRODUCT USED FOR UNKNOWN INDICATION
     Dosage: 40 MG, UID/QD
     Route: 065
  11. METHADONE HCL [Concomitant]
     Dosage: 5 MG, TID
     Route: 065
     Dates: start: 20110601
  12. MELOXICAM [Concomitant]
     Indication: PRODUCT USED FOR UNKNOWN INDICATION
     Dosage: UNK
     Route: 065
  13. MOBIC [Concomitant]
     Indication: PRODUCT USED FOR UNKNOWN INDICATION
     Dosage: 7.5 MG, UID/QD
     Route: 065
  14. SPIRONOLACTONE [Concomitant]
     Indication: PRODUCT USED FOR UNKNOWN INDICATION
     Dosage: 25 MG, UID/QD
     Route: 065
  15. LEXAPRO [Concomitant]
     Indication: PRODUCT USED FOR UNKNOWN INDICATION
     Dosage: 10 MG, UID/QD
     Route: 065
  16. REGLAN [Concomitant]
     Indication: NAUSEA
     Dosage: 5 MG, UID/QD
     Route: 065
  17. REGLAN [Concomitant]
     Indication: VOMITING

REACTIONS (9)
  - ANAEMIA [None]
  - HEAD INJURY [None]
  - NEPHROLITHIASIS [None]
  - SUICIDAL IDEATION [None]
  - MAJOR DEPRESSION [None]
  - OFF LABEL USE [None]
  - FALL [None]
  - DEPRESSION [None]
  - PRESYNCOPE [None]
